FAERS Safety Report 4490742-4 (Version None)
Quarter: 2004Q4

REPORT INFORMATION
  Report Type: 
  Country: None (occurrence: None)
  Receive Date: 20041027
  Receipt Date: 20041019
  Transmission Date: 20050328
  Serious: Yes (Life-Threatening)
  Sender: FDA-Public Use
  Company Number: 2004AP05093

PATIENT
  Age: 47 Year
  Sex: Female
  Weight: 51 kg

DRUGS (8)
  1. SEROQUEL [Suspect]
     Indication: BORDERLINE PERSONALITY DISORDER
     Dosage: 50 MG BID PO
     Route: 048
     Dates: start: 20040630, end: 20040811
  2. SEROQUEL [Suspect]
     Indication: BORDERLINE PERSONALITY DISORDER
     Dosage: 75 MG DAILY PO
     Route: 048
     Dates: start: 20040812, end: 20040827
  3. SEROQUEL [Suspect]
     Indication: BORDERLINE PERSONALITY DISORDER
     Dosage: 50 MG DAILY PO
     Route: 048
     Dates: start: 20040828, end: 20040911
  4. PAXIL [Suspect]
     Indication: BORDERLINE PERSONALITY DISORDER
     Dosage: 20 MG BID PO
     Route: 048
     Dates: start: 20040205
  5. DEPAS [Concomitant]
  6. SILECE [Concomitant]
  7. PARIET [Concomitant]
  8. PURSENNID [Concomitant]

REACTIONS (5)
  - BLOOD CHOLESTEROL INCREASED [None]
  - DRUG INTERACTION [None]
  - HYPERTRIGLYCERIDAEMIA [None]
  - INCREASED APPETITE [None]
  - WEIGHT INCREASED [None]
